FAERS Safety Report 8044207-3 (Version None)
Quarter: 2012Q1

REPORT INFORMATION
  Report Type: 
  Country: None (occurrence: None)
  Receive Date: 20120113
  Receipt Date: 20120104
  Transmission Date: 20120608
  Serious: Yes (Hospitalization)
  Sender: FDA-Public Use
  Company Number: FR-UCBSA-048658

PATIENT
  Age: 78 Year
  Sex: Male

DRUGS (12)
  1. METHOTREXATE SODIUM [Concomitant]
     Dates: start: 20111206
  2. PANTOPRAZOLE [Concomitant]
  3. DIHYDROERGOTAMINE MESYLATE [Concomitant]
  4. ACETAMINOPHEN [Concomitant]
  5. METHOTREXATE SODIUM [Concomitant]
  6. ALENDRONATE SODIUM [Concomitant]
  7. FOLIC ACID [Concomitant]
  8. PREDNISONE TAB [Concomitant]
  9. CIMZIA [Suspect]
     Indication: RHEUMATOID ARTHRITIS
     Route: 058
     Dates: start: 20110817, end: 20110920
  10. TENORMIN [Concomitant]
  11. ENBREL [Concomitant]
     Dates: end: 20110101
  12. CHONDROSULF [Concomitant]

REACTIONS (5)
  - COUGH [None]
  - INFLAMMATION [None]
  - GENERAL PHYSICAL HEALTH DETERIORATION [None]
  - PYREXIA [None]
  - ANAEMIA [None]
